FAERS Safety Report 8854691 (Version 1)
Quarter: 2012Q4

REPORT INFORMATION
  Report Type: 
  Country: ES (occurrence: ES)
  Receive Date: 20121023
  Receipt Date: 20121023
  Transmission Date: 20130627
  Serious: Yes (Hospitalization)
  Sender: FDA-Public Use
  Company Number: ES-PFIZER INC-2012262955

PATIENT
  Age: 75 Year
  Sex: Male

DRUGS (3)
  1. TAZOCEL [Suspect]
     Indication: BACTERIAL INFECTION
     Dosage: 6 g/day
     Route: 048
     Dates: start: 20110325, end: 20110325
  2. CIPROFLOXACIN [Interacting]
     Indication: BACTERIAL INFECTION
     Dosage: 400 mg/day
     Route: 048
     Dates: start: 20110325, end: 20110330
  3. CIPROFLOXACIN [Interacting]
     Dosage: 1.5 g/day
     Route: 048
     Dates: start: 20110330, end: 20110418

REACTIONS (2)
  - Drug interaction [Recovered/Resolved]
  - Clostridium difficile infection [Recovered/Resolved]
